FAERS Safety Report 12790979 (Version 6)
Quarter: 2018Q2

REPORT INFORMATION
  Report Type: Spontaneous
  Country: US (occurrence: US)
  Receive Date: 20160929
  Receipt Date: 20180404
  Transmission Date: 20180711
  Serious: Yes (Hospitalization)
  Sender: FDA-Public Use
  Company Number: US-PFIZER INC-2016449493

PATIENT
  Age: 88 Year
  Sex: Female

DRUGS (3)
  1. XELJANZ [Suspect]
     Active Substance: TOFACITINIB CITRATE
     Dosage: 5 MG, 2X/DAY
     Route: 048
     Dates: start: 201303
  2. XELJANZ [Suspect]
     Active Substance: TOFACITINIB CITRATE
     Dosage: 5 MG, UNK
     Dates: start: 201303, end: 201709
  3. HYDROCODONE [Concomitant]
     Active Substance: HYDROCODONE
     Dosage: UNK UNK, AS NEEDED

REACTIONS (6)
  - Abdominal pain [Unknown]
  - Pruritus [Unknown]
  - Hair growth abnormal [Unknown]
  - Rash [Unknown]
  - Alopecia [Unknown]
  - Fall [Unknown]

NARRATIVE: CASE EVENT DATE: 201709
